FAERS Safety Report 24120591 (Version 1)
Quarter: 2024Q3

REPORT INFORMATION
  Report Type: Spontaneous
  Country: FR (occurrence: FR)
  Receive Date: 20240722
  Receipt Date: 20240722
  Transmission Date: 20241017
  Serious: Yes (Other)
  Sender: ORGANON
  Company Number: FR-ORGANON-O2407FRA001288

PATIENT
  Sex: Female
  Weight: 85 kg

DRUGS (1)
  1. NEXPLANON [Suspect]
     Active Substance: ETONOGESTREL
     Dosage: 1 IMPLANT
     Route: 059
     Dates: start: 20240527, end: 20240708

REACTIONS (20)
  - Cerebrovascular accident [Unknown]
  - Facial paralysis [Unknown]
  - Vertigo [Recovered/Resolved]
  - Infection [Recovered/Resolved]
  - Hot flush [Recovered/Resolved]
  - Feeling hot [Not Recovered/Not Resolved]
  - Balance disorder [Recovered/Resolved]
  - Skin discolouration [Recovered/Resolved]
  - Disorientation [Recovered/Resolved]
  - Endometriosis [Recovered/Resolved]
  - Swelling [Recovered/Resolved]
  - Migraine [Not Recovered/Not Resolved]
  - Chest pain [Recovered/Resolved]
  - Back pain [Recovered/Resolved]
  - Vaginal haemorrhage [Recovered/Resolved]
  - Tremor [Recovered/Resolved]
  - Hypoaesthesia oral [Unknown]
  - Drug intolerance [Unknown]
  - Implant site infection [Unknown]
  - Fatigue [Unknown]

NARRATIVE: CASE EVENT DATE: 20240101
